FAERS Safety Report 7685966-9 (Version None)
Quarter: 2011Q3

REPORT INFORMATION
  Report Type: 
  Country: None (occurrence: None)
  Receive Date: 20110816
  Receipt Date: 20110810
  Transmission Date: 20111222
  Serious: Yes (Disabling)
  Sender: FDA-Public Use
  Company Number: CA-ALLERGAN-1110875US

PATIENT
  Age: 55 Year
  Sex: Female
  Weight: 63.492 kg

DRUGS (2)
  1. BOTULINUM TOXIN TYPE A [Suspect]
     Indication: PRODUCT USED FOR UNKNOWN INDICATION
     Dosage: 30 UNITS, SINGLE
     Route: 023
  2. BOTULINUM TOXIN TYPE A [Suspect]
     Dosage: 20 UNITS, UNK
     Route: 023

REACTIONS (2)
  - VISION BLURRED [None]
  - DIPLOPIA [None]
